FAERS Safety Report 23882372 (Version 4)
Quarter: 2025Q2

REPORT INFORMATION
  Report Type: Spontaneous
  Country: GB (occurrence: GB)
  Receive Date: 20240522
  Receipt Date: 20250530
  Transmission Date: 20250716
  Serious: Yes (Disabling, Other)
  Sender: ADVANZ PHARMA
  Company Number: None

PATIENT

DRUGS (8)
  1. PREDNISOLONE [Suspect]
     Active Substance: PREDNISOLONE
  2. TRAMADOL [Suspect]
     Active Substance: TRAMADOL
  3. AMITRIPTYLINE [Suspect]
     Active Substance: AMITRIPTYLINE
  4. GABAPENTIN [Suspect]
     Active Substance: GABAPENTIN
  5. DIAZEPAM [Suspect]
     Active Substance: DIAZEPAM
  6. COCODAMOL [Concomitant]
     Active Substance: ACETAMINOPHEN\CODEINE PHOSPHATE
  7. PAROXETINE [Concomitant]
     Active Substance: PAROXETINE
  8. LANSOPRAZOLE [Concomitant]
     Active Substance: LANSOPRAZOLE

REACTIONS (27)
  - Aggression [Unknown]
  - Crying [Unknown]
  - Anger [Unknown]
  - Abnormal dreams [Unknown]
  - Condition aggravated [Unknown]
  - Substance-induced psychotic disorder [Unknown]
  - Fall [Unknown]
  - Trigeminal neuralgia [Unknown]
  - Thoracic outlet syndrome [Unknown]
  - Thoracic radiculopathy [Unknown]
  - Hallucination [Unknown]
  - Mood swings [Unknown]
  - Nausea [Unknown]
  - Headache [Unknown]
  - Vomiting [Unknown]
  - Confusional state [Unknown]
  - Inappropriate affect [Unknown]
  - Insomnia [Unknown]
  - Mania [Unknown]
  - Amnesia [Unknown]
  - Cataract [Unknown]
  - Bedridden [Unknown]
  - Mobility decreased [Unknown]
  - Pain [Unknown]
  - Agitation [Unknown]
  - Tearfulness [Unknown]
  - Dizziness [Unknown]

NARRATIVE: CASE EVENT DATE: 20240201
